FAERS Safety Report 9290577 (Version 2)
Quarter: 2013Q3

REPORT INFORMATION
  Report Type: Report from Study
  Country: US (occurrence: US)
  Receive Date: 20130515
  Receipt Date: 20130722
  Transmission Date: 20140515
  Serious: Yes (Death, Other)
  Sender: FDA-Public Use
  Company Number: US-ELI_LILLY_AND_COMPANY-US201305002123

PATIENT
  Age: 69 Year
  Sex: Female
  Weight: 63.95 kg

DRUGS (2)
  1. OLANZAPINE [Suspect]
     Dosage: 15 MG, EACH EVENING
  2. OLANZAPINE [Suspect]
     Indication: SCHIZOPHRENIA, PARANOID TYPE
     Dosage: 2.5 MG, EACH EVENING

REACTIONS (1)
  - Death [Fatal]
